FAERS Safety Report 9486064 (Version 1)
Quarter: 2013Q3

REPORT INFORMATION
  Report Type: Spontaneous
  Country: US (occurrence: US)
  Receive Date: 20130829
  Receipt Date: 20130829
  Transmission Date: 20140515
  Serious: Yes (Other)
  Sender: FDA-Public Use
  Company Number: US-BAYER-2013-104428

PATIENT
  Sex: Female
  Weight: 68 kg

DRUGS (5)
  1. BETASERON [Suspect]
     Dosage: 1 ML, QOD
     Route: 058
  2. LYRICA [Concomitant]
     Dosage: 100 MG, UNK
  3. TRAMADOL HCL CF [Concomitant]
     Dosage: 50 MG, UNK
  4. FLEXERIL [Concomitant]
     Dosage: 5 MG, UNK
  5. ESTROVEN [Concomitant]

REACTIONS (2)
  - Multiple sclerosis relapse [Unknown]
  - Adverse drug reaction [Unknown]
